FAERS Safety Report 15390026 (Version 1)
Quarter: 2018Q3

REPORT INFORMATION
  Report Type: Spontaneous
  Country: US (occurrence: US)
  Receive Date: 20180907
  Receipt Date: 20180907
  Transmission Date: 20181010
  Serious: No
  Sender: FDA-Public Use
  Company Number: None

PATIENT
  Sex: Female

DRUGS (5)
  1. FOLLISTIM AQ [Suspect]
     Active Substance: FOLLITROPIN
     Indication: INFERTILITY FEMALE
     Dosage: 75/450 DF QDX10?14 DAYS, SUBQ
     Route: 058
     Dates: start: 20180816
  2. GANIRELIX 250MCG ORGANON USA INC [Suspect]
     Active Substance: GANIRELIX
     Indication: INFERTILITY FEMALE
     Route: 058
     Dates: start: 20180816
  3. LEUPROLIDE [Concomitant]
     Active Substance: LEUPROLIDE
  4. NOVAREL [Concomitant]
     Active Substance: CHORIOGONADOTROPIN ALFA
  5. MEROPUR [Concomitant]
     Active Substance: MENOTROPINS

REACTIONS (1)
  - Crying [None]
